FAERS Safety Report 9791627 (Version 1)
Quarter: 2014Q1

REPORT INFORMATION
  Report Type: Spontaneous
  Country: NL (occurrence: NL)
  Receive Date: 20140102
  Receipt Date: 20140102
  Transmission Date: 20141002
  Serious: Yes (Other)
  Sender: FDA-Public Use
  Company Number: NL-ROCHE-1328301

PATIENT
  Sex: 0

DRUGS (4)
  1. ENFUVIRTIDE [Suspect]
     Indication: PRODUCT USED FOR UNKNOWN INDICATION
     Route: 064
  2. LOPINAVIR [Suspect]
     Indication: PROPHYLAXIS AGAINST HIV INFECTION
     Route: 065
  3. NEVIRAPINE [Suspect]
     Indication: PROPHYLAXIS AGAINST HIV INFECTION
     Route: 065
  4. LAMIVUDINE [Suspect]
     Indication: PROPHYLAXIS AGAINST HIV INFECTION
     Route: 065

REACTIONS (2)
  - Haemoglobin decreased [Unknown]
  - Foetal exposure during pregnancy [Unknown]
